FAERS Safety Report 9521779 (Version 2)
Quarter: 2013Q3

REPORT INFORMATION
  Report Type: Spontaneous
  Country: JP (occurrence: JP)
  Receive Date: 20130913
  Receipt Date: 20130924
  Transmission Date: 20140515
  Serious: Yes (Death, Hospitalization, Other)
  Sender: FDA-Public Use
  Company Number: PHHY2013JP100052

PATIENT
  Age: 80 Year
  Sex: Male

DRUGS (14)
  1. NEORAL [Suspect]
     Indication: RHEUMATOID ARTHRITIS
     Dosage: 50 MG, UNK
     Route: 048
     Dates: start: 200904
  2. PREDNISOLONE [Suspect]
     Dosage: 40 MG, UNK
     Route: 048
  3. PREDNISOLONE [Suspect]
     Dosage: 15 MG, UNK
     Route: 048
  4. PREDNISOLONE [Suspect]
     Dosage: 10 MG, UNK
     Route: 048
  5. PREDNISOLONE [Suspect]
     Dosage: 7.5 MG, UNK
     Route: 048
  6. PREDNISOLONE [Suspect]
     Dosage: 6 MG, UNK
     Route: 048
  7. PREDNISOLONE [Suspect]
     Dosage: 5 MG, UNK
     Route: 048
  8. PREDNISOLONE [Suspect]
     Dosage: 4 MG, UNK
     Route: 048
  9. FLUCONAZOLE [Suspect]
     Indication: CRYPTOCOCCOSIS
     Dosage: 200 MG, UNK
     Route: 048
  10. MEROPENEM [Suspect]
     Indication: PNEUMONIA BACTERIAL
  11. LEVOFLOXACIN [Suspect]
     Indication: PYREXIA
  12. LEVOFLOXACIN [Suspect]
     Indication: FATIGUE
  13. LEVOFLOXACIN [Suspect]
     Indication: RESPIRATORY DISTRESS
  14. AMPHOTERICIN B [Suspect]
     Dosage: 150 MG, UNK
     Dates: end: 20110621

REACTIONS (16)
  - Renal failure [Fatal]
  - Pneumonia [Recovering/Resolving]
  - Cryptococcosis [Recovering/Resolving]
  - Fatigue [Unknown]
  - Pyrexia [Unknown]
  - Dyspnoea [Unknown]
  - Erythema [Recovered/Resolved]
  - Hypokinesia [Unknown]
  - Dysphagia [Unknown]
  - Rash [Unknown]
  - Skin plaque [Unknown]
  - Skin ulcer [Recovering/Resolving]
  - Unresponsive to stimuli [Unknown]
  - Urinary tract infection bacterial [Unknown]
  - Encephalomyelitis [Unknown]
  - Drug ineffective [Unknown]
